FAERS Safety Report 11854420 (Version 1)
Quarter: 2015Q4

REPORT INFORMATION
  Report Type: Report from Study
  Country: DE (occurrence: DE)
  Receive Date: 20151221
  Receipt Date: 20151221
  Transmission Date: 20160305
  Serious: Yes (Hospitalization)
  Sender: FDA-Public Use
  Company Number: DE-ROCHE-1679828

PATIENT
  Age: 69 Year
  Sex: Male
  Weight: 62 kg

DRUGS (9)
  1. CYTARABINE. [Suspect]
     Active Substance: CYTARABINE
     Indication: DIFFUSE LARGE B-CELL LYMPHOMA
     Dosage: TOTAL DOSE, MOST RECENT DOSE ON 31/OCT/2015
     Route: 065
     Dates: start: 20150909
  2. EMEND [Concomitant]
     Active Substance: APREPITANT
     Dosage: 125/80/80 MG/ DAY
     Route: 065
     Dates: start: 20151028, end: 20151030
  3. TEMSIROLIMUS [Suspect]
     Active Substance: TEMSIROLIMUS
     Indication: DIFFUSE LARGE B-CELL LYMPHOMA
     Dosage: 25 MG/INFUSION (CONCENTRATE FOR SOLUTION FOR INFUSION). LAST DOSE PRIOR TO SAE ON 28/OCT/2015.
     Route: 065
     Dates: start: 20150916
  4. CISPLATIN. [Suspect]
     Active Substance: CISPLATIN
     Indication: DIFFUSE LARGE B-CELL LYMPHOMA
     Dosage: MOST RECENT DOSE ON 30/OCT/2015
     Route: 065
     Dates: start: 20150918
  5. PANTOZOL [Concomitant]
     Active Substance: PANTOPRAZOLE SODIUM
     Route: 065
     Dates: start: 20150916
  6. GRANISETRON [Concomitant]
     Active Substance: GRANISETRON
     Route: 042
     Dates: start: 20151028
  7. RITUXIMAB [Suspect]
     Active Substance: RITUXIMAB
     Indication: DIFFUSE LARGE B-CELL LYMPHOMA
     Dosage: MOST RECENT DOSE ON 29/OCT/2015
     Route: 065
     Dates: start: 20150917
  8. DEXAMETHASONE. [Suspect]
     Active Substance: DEXAMETHASONE
     Indication: DIFFUSE LARGE B-CELL LYMPHOMA
     Dosage: MOST RECENT DOSE ON 02/NOV/2015
     Route: 065
     Dates: start: 20150918
  9. CARBOPLATIN. [Suspect]
     Active Substance: CARBOPLATIN
     Indication: DIFFUSE LARGE B-CELL LYMPHOMA
     Dosage: MOST RECENT DOSE ON 30/OCT/2015
     Route: 065
     Dates: start: 20150918

REACTIONS (1)
  - Decreased appetite [Recovered/Resolved]

NARRATIVE: CASE EVENT DATE: 20151102
